FAERS Safety Report 10971369 (Version 1)
Quarter: 2015Q1

REPORT INFORMATION
  Report Type: Spontaneous
  Country: US (occurrence: None)
  Receive Date: 20150330
  Receipt Date: 20150330
  Transmission Date: 20150721
  Serious: Yes (Life-Threatening, Other)
  Sender: FDA-Public Use
  Company Number: None

PATIENT
  Age: 58 Year

DRUGS (2)
  1. VALIUM [Concomitant]
     Active Substance: DIAZEPAM
  2. NATURE-THROID [Suspect]
     Active Substance: THYROID, PORCINE
     Indication: HYPOTHYROIDISM
     Dosage: 2 PILLS
     Route: 048

REACTIONS (7)
  - Oropharyngeal pain [None]
  - Fear [None]
  - Pharyngeal oedema [None]
  - Choking [None]
  - Dysphagia [None]
  - Throat irritation [None]
  - Pharyngeal hypoaesthesia [None]

NARRATIVE: CASE EVENT DATE: 20150313
